FAERS Safety Report 7964721 (Version 5)
Quarter: 2013Q4

REPORT INFORMATION
  Report Type: Report from Study
  Country: US (occurrence: US)
  Receive Date: 20110527
  Receipt Date: 20131220
  Transmission Date: 20140711
  Serious: Yes (Hospitalization)
  Sender: FDA-Public Use
  Company Number: US-JNJFOC-20110508757

PATIENT
  Age: 15 Year
  Sex: Male
  Weight: 41.7 kg

DRUGS (7)
  1. INFLIXIMAB, RECOMBINANT [Suspect]
     Indication: INFLAMMATORY BOWEL DISEASE
     Route: 042
     Dates: start: 20070804, end: 20090402
  2. THALIDOMID [Concomitant]
  3. ANTIBIOTICS FOR IBD [Concomitant]
  4. CYPROHEPTADINE [Concomitant]
  5. IRON [Concomitant]
  6. CALCIUM [Concomitant]
  7. VITAMIN D [Concomitant]

REACTIONS (1)
  - Weight decreased [Recovered/Resolved]
